FAERS Safety Report 4970893-8 (Version None)
Quarter: 2006Q2

REPORT INFORMATION
  Report Type: 
  Country: None (occurrence: None)
  Receive Date: 20060406
  Receipt Date: 20060327
  Transmission Date: 20061013
  Serious: Yes (Other)
  Sender: FDA-Public Use
  Company Number: 200610307BYL

PATIENT
  Age: 61 Year
  Sex: Female

DRUGS (4)
  1. AVELOX [Suspect]
     Indication: BRONCHITIS
     Dosage: 400 MG, QD, ORAL
     Route: 048
     Dates: start: 20060224
  2. MUCODYNE [Concomitant]
  3. COLDRIN [Concomitant]
  4. HOKUNALIN [Concomitant]

REACTIONS (6)
  - DIZZINESS [None]
  - HYPOTENSION [None]
  - HYPOTHERMIA [None]
  - NAUSEA [None]
  - PALLOR [None]
  - SHOCK [None]
